FAERS Safety Report 8336554-2 (Version None)
Quarter: 2012Q2

REPORT INFORMATION
  Report Type: 
  Country: None (occurrence: None)
  Receive Date: 20120501
  Receipt Date: 20120416
  Transmission Date: 20120825
  Serious: Yes (Hospitalization, Other)
  Sender: FDA-Public Use
  Company Number: 2011-000188

PATIENT
  Age: 54 Year
  Sex: Female

DRUGS (10)
  1. ACTONEL [Suspect]
     Indication: OSTEOPOROSIS
     Dosage: 35 MG, ONCE WEEKLY, ORAL
     Route: 048
     Dates: start: 20061101, end: 20080801
  2. VITAMIN TAB [Concomitant]
  3. ASCORBIC ACID [Concomitant]
  4. COLECALCIFEROL (COLECALCIFEROL) [Concomitant]
  5. ASPIRIN [Concomitant]
  6. ACTONEL [Suspect]
     Indication: OSTEOPENIA
     Dosage: 1509 MG ONCE MONTHLY, ORAL
     Route: 048
     Dates: start: 20081230, end: 20100301
  7. VITAMIN E [Concomitant]
  8. CALCIUM CITRATE (CALCIUM CITRATE) [Concomitant]
  9. FOSAMAX [Suspect]
     Indication: OSTEOPOROSIS
     Dosage: 70 MG, ONCE WEEKLY, ORAL
     Dates: start: 20020801, end: 20061120
  10. SIMVASTATIN (S9MVASTATIN) [Concomitant]

REACTIONS (14)
  - FEMUR FRACTURE [None]
  - BONE DISORDER [None]
  - VULVOVAGINAL DRYNESS [None]
  - MOOD SWINGS [None]
  - FALL [None]
  - FRACTURE DISPLACEMENT [None]
  - STRESS FRACTURE [None]
  - ABASIA [None]
  - HYPERCALCIURIA [None]
  - PAIN [None]
  - MUSCULAR WEAKNESS [None]
  - LOW TURNOVER OSTEOPATHY [None]
  - HOT FLUSH [None]
  - IRRITABILITY [None]
